FAERS Safety Report 5567836-5 (Version None)
Quarter: 2007Q4

REPORT INFORMATION
  Report Type: 
  Country: None (occurrence: None)
  Receive Date: 20071220
  Receipt Date: 20071213
  Transmission Date: 20080405
  Serious: Yes (Hospitalization, Other)
  Sender: FDA-Public Use
  Company Number: PHHO2004IT13160

PATIENT
  Age: 55 Year
  Sex: Female
  Weight: 67 kg

DRUGS (2)
  1. TAMOXIFEN CITRATE [Suspect]
     Indication: BREAST CANCER
     Dosage: UNK, UNK
     Route: 048
     Dates: start: 20021113, end: 20040527
  2. TAMOXIFEN CITRATE [Suspect]
     Route: 048

REACTIONS (6)
  - ENDOMETRIAL ABLATION [None]
  - HYSTEROSCOPY [None]
  - OOPHORECTOMY BILATERAL [None]
  - OVARIAN ADENOMA [None]
  - UTERINE POLYP [None]
  - VAGINAL HAEMORRHAGE [None]
